FAERS Safety Report 4457860-8 (Version None)
Quarter: 2004Q3

REPORT INFORMATION
  Report Type: 
  Country: None (occurrence: None)
  Receive Date: 20040924
  Receipt Date: 20040914
  Transmission Date: 20050211
  Serious: Yes (Other)
  Sender: FDA-Public Use
  Company Number: ES-JNJFOC-20040902123

PATIENT
  Age: 38 Year
  Sex: Female

DRUGS (9)
  1. REMICADE [Suspect]
     Indication: CROHN'S DISEASE
     Dosage: DOSE RECEIVED IN WEEK 0, 2, 6, THEN EVERY 8 WEEKS FOR 3 MAINTENANCE DOSES.
     Route: 042
  2. ISONIAZID [Concomitant]
     Indication: TUBERCULOSIS
     Route: 065
  3. DECORTIN [Concomitant]
     Route: 065
  4. IMUREL [Concomitant]
     Route: 065
  5. IMUREL [Concomitant]
     Route: 065
  6. LEVOFLOXACIN [Concomitant]
     Route: 065
  7. LEVOFLOXACIN [Concomitant]
     Route: 065
  8. METRONIDAZOLE [Concomitant]
     Route: 065
  9. FOLAXIN [Concomitant]
     Route: 065

REACTIONS (2)
  - ARTHRALGIA [None]
  - JOINT STIFFNESS [None]
